FAERS Safety Report 24311631 (Version 2)
Quarter: 2024Q4

REPORT INFORMATION
  Report Type: Report from Study
  Country: US (occurrence: US)
  Receive Date: 20240912
  Receipt Date: 20241218
  Transmission Date: 20250114
  Serious: Yes (Other)
  Sender: AMGEN
  Company Number: US-AMGEN-USASP2024178782

PATIENT
  Age: 47 Year
  Sex: Female

DRUGS (2)
  1. TEPEZZA [Suspect]
     Active Substance: TEPROTUMUMAB-TRBW
     Indication: Toxic goitre
     Dosage: 20 MILLIGRAM
     Route: 065
     Dates: start: 20221020, end: 20230301
  2. TEPEZZA [Suspect]
     Active Substance: TEPROTUMUMAB-TRBW
     Dosage: 20 MILLIGRAM/KILOGRAM
     Route: 065
     Dates: end: 20240508

REACTIONS (8)
  - Endocrine ophthalmopathy [Unknown]
  - Deafness transitory [Recovered/Resolved]
  - Nail disorder [Unknown]
  - Onychoclasis [Unknown]
  - Alopecia [Unknown]
  - Hair growth abnormal [Unknown]
  - Nail growth abnormal [Unknown]
  - Strabismus [Unknown]

NARRATIVE: CASE EVENT DATE: 20221001
